FAERS Safety Report 17081711 (Version 1)
Quarter: 2019Q4

REPORT INFORMATION
  Report Type: Spontaneous
  Country: US (occurrence: US)
  Receive Date: 20191126
  Receipt Date: 20191126
  Transmission Date: 20200122
  Serious: No
  Sender: FDA-Public Use
  Company Number: None

PATIENT

DRUGS (3)
  1. ADRENALIN [Suspect]
     Active Substance: EPINEPHRINE
  2. RETACRIT [Concomitant]
     Active Substance: EPOETIN ALFA-EPBX
  3. RETACRIT [Suspect]
     Active Substance: EPOETIN ALFA-EPBX

REACTIONS (1)
  - Product appearance confusion [None]
